FAERS Safety Report 8005639-2 (Version None)
Quarter: 2011Q4

REPORT INFORMATION
  Report Type: 
  Country: None (occurrence: None)
  Receive Date: 20111223
  Receipt Date: 20111220
  Transmission Date: 20120403
  Serious: Yes (Death, Hospitalization)
  Sender: FDA-Public Use
  Company Number: JP-SANOFI-AVENTIS-2011SA053646

PATIENT
  Age: 82 Year
  Sex: Male
  Weight: 64 kg

DRUGS (9)
  1. TAXOTERE [Suspect]
     Route: 042
     Dates: start: 20110512, end: 20110809
  2. TAXOTERE [Suspect]
     Route: 042
     Dates: start: 20110810, end: 20110818
  3. PREDNISOLONE [Concomitant]
     Indication: PROSTATE CANCER
     Dates: start: 20110804, end: 20110818
  4. GRANISETRON [Concomitant]
     Indication: PREMEDICATION
     Dosage: FREQUENCY: EVERY ADMINISTRATION OF COMPANY DRUG
  5. CASODEX [Concomitant]
     Indication: ADJUVANT THERAPY
     Dates: start: 20070305
  6. TAXOTERE [Suspect]
     Indication: PROSTATE CANCER
     Dosage: FORM: INTRAVENOUS INFUSION
     Route: 042
     Dates: start: 20100804, end: 20100914
  7. TAXOTERE [Suspect]
     Route: 042
     Dates: start: 20100915, end: 20101116
  8. TAXOTERE [Suspect]
     Route: 042
     Dates: start: 20101117, end: 20110511
  9. DEXAMETHASONE SODIUM PHOSPHATE [Concomitant]
     Indication: PREMEDICATION
     Dosage: FREQUENCY: EVERY ADMINISTRATION OF COMPANY DRUG

REACTIONS (7)
  - PULMONARY HAEMORRHAGE [None]
  - DYSPNOEA [None]
  - NEUTROPENIA [None]
  - HAEMOPTYSIS [None]
  - CARDIAC ARREST [None]
  - PULMONARY OEDEMA [None]
  - RESPIRATORY FAILURE [None]
